FAERS Safety Report 10082672 (Version 1)
Quarter: 2014Q2

REPORT INFORMATION
  Report Type: Spontaneous
  Country: IN (occurrence: IN)
  Receive Date: 20140416
  Receipt Date: 20140416
  Transmission Date: 20141212
  Serious: Yes (Other)
  Sender: FDA-Public Use
  Company Number: PHHY2014IN042338

PATIENT
  Age: 28 Year
  Sex: Male

DRUGS (6)
  1. ZIPRASIDONE [Suspect]
     Indication: SCHIZOPHRENIA, PARANOID TYPE
     Dosage: 40 MG, UNK
  2. ZIPRASIDONE [Suspect]
     Dosage: 80 MG, UNK
  3. ZIPRASIDONE [Suspect]
     Dosage: 60 MG, UNK
  4. CLONAZEPAM [Concomitant]
  5. SERTRALINE [Concomitant]
     Dosage: 25 MG, UNK
  6. PROPRANOLOL [Concomitant]
     Dosage: 20 MG, UNK

REACTIONS (6)
  - Emotional distress [Recovered/Resolved]
  - Extrapyramidal disorder [Recovered/Resolved]
  - Parkinsonism [Recovered/Resolved]
  - Oromandibular dystonia [Recovered/Resolved]
  - Torticollis [Recovered/Resolved]
  - Akathisia [Recovered/Resolved]
